FAERS Safety Report 9375517 (Version 1)
Quarter: 2013Q2

REPORT INFORMATION
  Report Type: Spontaneous
  Country: US (occurrence: US)
  Receive Date: 20130628
  Receipt Date: 20130628
  Transmission Date: 20140414
  Serious: No
  Sender: FDA-Public Use
  Company Number: US-BAYER-2013-079456

PATIENT
  Age: 70 Year
  Sex: Female
  Weight: 66.21 kg

DRUGS (4)
  1. CLIMARA [Suspect]
     Indication: HORMONE REPLACEMENT THERAPY
     Dosage: 0.05 MG/24HR, OW
     Route: 062
     Dates: start: 20130523
  2. VITAMIN D3 [Concomitant]
     Indication: HYPERAESTHESIA
     Dosage: DAILY DOSE 2000 IU
     Route: 048
     Dates: start: 2009
  3. ADVIL [Concomitant]
     Indication: BONE PAIN
     Dosage: 200 MG, QID
     Route: 048
     Dates: start: 2008
  4. OSTEO BI-FLEX [Concomitant]
     Indication: PROPHYLAXIS
     Dosage: UNK UNK, BID
     Route: 048
     Dates: start: 2012

REACTIONS (3)
  - Irritability [None]
  - Pruritus [Not Recovered/Not Resolved]
  - Erythema [Not Recovered/Not Resolved]
